FAERS Safety Report 9271931 (Version 1)
Quarter: 2013Q2

REPORT INFORMATION
  Report Type: Spontaneous
  Country: US (occurrence: US)
  Receive Date: 20130506
  Receipt Date: 20130506
  Transmission Date: 20140414
  Serious: Yes (Other)
  Sender: FDA-Public Use
  Company Number: US-TARO-2012P1035116

PATIENT
  Age: 65 Year
  Sex: Female

DRUGS (3)
  1. ETODOLAC [Suspect]
     Indication: ARTHRITIS
  2. BENICAR [Concomitant]
  3. ALLEGRA [Suspect]
     Dates: start: 201103, end: 20120425

REACTIONS (2)
  - Blood pressure increased [Recovering/Resolving]
  - Blood glucose increased [Unknown]
